FAERS Safety Report 17576630 (Version 2)
Quarter: 2020Q2

REPORT INFORMATION
  Report Type: Spontaneous
  Country: US (occurrence: US)
  Receive Date: 20200324
  Receipt Date: 20200622
  Transmission Date: 20200713
  Serious: Yes (Hospitalization)
  Sender: FDA-Public Use
  Company Number: US-ACORDA-ACO_163367_2020

PATIENT
  Sex: Male
  Weight: 77.1 kg

DRUGS (3)
  1. CARBIDOPA AND LEVODOPA [Concomitant]
     Active Substance: CARBIDOPA\LEVODOPA
     Indication: PRODUCT USED FOR UNKNOWN INDICATION
     Dosage: UNK
     Route: 065
  2. INBRIJA [Suspect]
     Active Substance: LEVODOPA
     Indication: ON AND OFF PHENOMENON
  3. INBRIJA [Suspect]
     Active Substance: LEVODOPA
     Indication: PARKINSON^S DISEASE
     Dosage: 84 MILLIGRAM, UP TO 5 TIMES DAILY (ALSO REPORTED AS 2 DOSAGE FORMS (84MG) TID)
     Dates: start: 20200115

REACTIONS (6)
  - Therapeutic response unexpected [Unknown]
  - Sleep disorder [Not Recovered/Not Resolved]
  - Product packaging issue [Unknown]
  - Cough [Not Recovered/Not Resolved]
  - Hypotension [Unknown]
  - Product label issue [Unknown]
